FAERS Safety Report 9171439 (Version 1)
Quarter: 2013Q1

REPORT INFORMATION
  Report Type: Spontaneous
  Country: US (occurrence: None)
  Receive Date: 20130318
  Receipt Date: 20130318
  Transmission Date: 20140127
  Serious: Yes (Other)
  Sender: FDA-Public Use
  Company Number: None

PATIENT
  Age: 27 Year
  Sex: Female

DRUGS (1)
  1. EPINEPHRINE [Suspect]
     Dates: start: 20130307

REACTIONS (3)
  - Dyspnoea [None]
  - Dysphagia [None]
  - Foaming at mouth [None]
